FAERS Safety Report 15076528 (Version 1)
Quarter: 2018Q2

REPORT INFORMATION
  Report Type: Spontaneous
  Country: US (occurrence: US)
  Receive Date: 20180627
  Receipt Date: 20180627
  Transmission Date: 20180711
  Serious: No
  Sender: FDA-Public Use
  Company Number: US-MYLANLABS-2018M1044563

PATIENT
  Sex: Female

DRUGS (2)
  1. LEVETIRACETAM MYLAN [Suspect]
     Active Substance: LEVETIRACETAM
     Indication: TRIGEMINAL NEURALGIA
     Dosage: UNK
     Route: 065
     Dates: start: 201710
  2. LEVETIRACETAM MYLAN [Suspect]
     Active Substance: LEVETIRACETAM
     Dosage: JUST RAISED DOSE TO 2000 MG
     Dates: start: 20180407

REACTIONS (1)
  - Nipple pain [Unknown]

NARRATIVE: CASE EVENT DATE: 2018
